FAERS Safety Report 5739575-9 (Version None)
Quarter: 2008Q2

REPORT INFORMATION
  Report Type: 
  Country: None (occurrence: None)
  Receive Date: 20080515
  Receipt Date: 20080506
  Transmission Date: 20081010
  Serious: Yes (Hospitalization)
  Sender: FDA-Public Use
  Company Number: IN-GILEAD-2008-0016280

PATIENT
  Sex: Male

DRUGS (4)
  1. EMTRICITABINE [Suspect]
     Route: 048
     Dates: start: 20070731
  2. TENOFOVIR DISOPROXIL FUMARATE [Suspect]
     Route: 048
     Dates: start: 20070731
  3. ATAZANAVIR SULFATE [Concomitant]
     Route: 048
     Dates: start: 20070731
  4. STAVUDINE [Concomitant]
     Route: 048
     Dates: start: 20070731

REACTIONS (1)
  - PULMONARY TUBERCULOSIS [None]
